FAERS Safety Report 7213990-9 (Version None)
Quarter: 2011Q1

REPORT INFORMATION
  Report Type: 
  Country: None (occurrence: None)
  Receive Date: 20110106
  Receipt Date: 20110105
  Transmission Date: 20110831
  Serious: Yes (Hospitalization)
  Sender: FDA-Public Use
  Company Number: DE-SANOFI-AVENTIS-2011SA000500

PATIENT
  Age: 46 Year
  Sex: Female
  Weight: 62 kg

DRUGS (1)
  1. ARAVA [Suspect]
     Route: 048
     Dates: start: 20090930, end: 20100222

REACTIONS (1)
  - HYPERTENSIVE CRISIS [None]
